FAERS Safety Report 24758876 (Version 4)
Quarter: 2025Q1

REPORT INFORMATION
  Report Type: Spontaneous
  Country: KR (occurrence: KR)
  Receive Date: 20241220
  Receipt Date: 20250331
  Transmission Date: 20250408
  Serious: Yes (Hospitalization, Other)
  Sender: ACCORD
  Company Number: KR-Accord-441540

PATIENT
  Age: 55 Year
  Sex: Female

DRUGS (28)
  1. FLUOROURACIL [Suspect]
     Active Substance: FLUOROURACIL
     Indication: Colorectal cancer
     Route: 042
     Dates: start: 20240627, end: 20240729
  2. IRINOTECAN [Suspect]
     Active Substance: IRINOTECAN
     Indication: Colorectal cancer
     Route: 042
     Dates: start: 20240627, end: 20240729
  3. LEUCOVORIN [Suspect]
     Active Substance: LEUCOVORIN\LEUCOVORIN CALCIUM
     Indication: Colorectal cancer
     Route: 042
     Dates: start: 20240627, end: 20240729
  4. BEVACIZUMAB [Concomitant]
     Active Substance: BEVACIZUMAB
     Indication: Colorectal cancer
     Route: 042
     Dates: start: 20240627, end: 20240729
  5. MAGNESIUM W/POTASSIUM [Concomitant]
     Dates: start: 20240715
  6. FISH OIL [Concomitant]
     Active Substance: FISH OIL
     Dates: start: 20240719, end: 20240725
  7. ATROPINE [Concomitant]
     Active Substance: ATROPINE
     Dates: start: 20240716, end: 20240716
  8. DEXAMETHASONE [Concomitant]
     Active Substance: DEXAMETHASONE
     Dates: start: 20240627, end: 20240719
  9. MONTMORILLONITE [Concomitant]
     Active Substance: MONTMORILLONITE
     Dates: start: 20240719, end: 20240719
  10. FOSAPREPITANT [Concomitant]
     Active Substance: FOSAPREPITANT
     Dates: start: 20240716
  11. Lacticare-HC [Concomitant]
     Dates: start: 20240702
  12. BUTYLSCOPOLAMINE [Concomitant]
     Active Substance: BUTYLSCOPOLAMINE
     Indication: Diarrhoea
     Route: 042
     Dates: start: 20240701, end: 20240705
  13. LOPERAMIDE [Concomitant]
     Active Substance: LOPERAMIDE
     Dates: start: 20240629
  14. ATIVAN [Concomitant]
     Active Substance: LORAZEPAM
     Dates: start: 20240719
  15. METOCLOPRAMIDE [Concomitant]
     Active Substance: METOCLOPRAMIDE
     Dates: start: 20240628
  16. ALOXI [Concomitant]
     Active Substance: PALONOSETRON HYDROCHLORIDE
     Dates: start: 20240627
  17. PHENIRAMINE [Concomitant]
     Active Substance: PHENIRAMINE
     Dates: start: 20240627, end: 20240725
  18. POTASSIUM CHLORIDE [Concomitant]
     Active Substance: POTASSIUM CHLORIDE
     Dates: start: 20240725, end: 20240725
  19. PROPACETAMOL HYDROCHLORIDE [Concomitant]
     Active Substance: PROPACETAMOL HYDROCHLORIDE
     Indication: Febrile neutropenia
     Dates: start: 20240721, end: 20240721
  20. Lamina-G [Concomitant]
     Dates: start: 20240719, end: 20240720
  21. TRAMADOL HYDROCHLORIDE [Concomitant]
     Active Substance: TRAMADOL HYDROCHLORIDE
     Dates: start: 20240628
  22. LANSOPRAZOLE [Concomitant]
     Active Substance: LANSOPRAZOLE
     Dates: start: 20240719, end: 20240731
  23. AZITHROMYCIN [Concomitant]
     Active Substance: AZITHROMYCIN
     Dates: start: 20240726, end: 20240731
  24. NICOTINAMIDE W/PYRIDOXINE HYDROCHL. [Concomitant]
     Dates: start: 20240701
  25. FLUOROURACIL [Suspect]
     Active Substance: FLUOROURACIL
     Indication: Colorectal cancer
     Route: 065
     Dates: start: 20240822
  26. LEUCOVORIN [Suspect]
     Active Substance: LEUCOVORIN\LEUCOVORIN CALCIUM
     Indication: Colorectal cancer
     Route: 042
     Dates: start: 20240822
  27. IRINOTECAN [Suspect]
     Active Substance: IRINOTECAN
     Indication: Colorectal cancer
     Route: 042
     Dates: start: 20240822
  28. BEVACIZUMAB [Concomitant]
     Active Substance: BEVACIZUMAB
     Indication: Colorectal cancer
     Route: 042
     Dates: start: 20240822

REACTIONS (1)
  - Febrile neutropenia [Recovered/Resolved]

NARRATIVE: CASE EVENT DATE: 20240728
